FAERS Safety Report 8298167-0 (Version None)
Quarter: 2012Q2

REPORT INFORMATION
  Report Type: 
  Country: None (occurrence: None)
  Receive Date: 20120419
  Receipt Date: 20120126
  Transmission Date: 20120825
  Serious: No
  Sender: FDA-Public Use
  Company Number: US-BRISTOL-MYERS SQUIBB COMPANY-16096034

PATIENT
  Age: 54 Year
  Sex: Male

DRUGS (1)
  1. YERVOY [Suspect]
     Dosage: HE WAS ON FOURTH TREATMENT

REACTIONS (3)
  - OCULAR HYPERAEMIA [None]
  - DERMATITIS [None]
  - HEADACHE [None]
